FAERS Safety Report 5336411-X (Version None)
Quarter: 2007Q2

REPORT INFORMATION
  Report Type: 
  Country: None (occurrence: None)
  Receive Date: 20070523
  Receipt Date: 20070518
  Transmission Date: 20071010
  Serious: Yes (Hospitalization)
  Sender: FDA-Public Use
  Company Number: 20070026USST

PATIENT
  Age: 30 Year
  Sex: Female

DRUGS (4)
  1. NATULAN (PROCARBAZINE HYDROCHLORIDE) CAPSULES [Suspect]
     Dosage: PO
     Route: 048
     Dates: start: 19810101
  2. PAS D'AMM (RADIOTHERAPY) [Suspect]
     Dates: start: 19810101
  3. ONCOVIN [Suspect]
     Dosage: IV
     Route: 042
     Dates: start: 19810101
  4. CARYOLYSINE (CHLORMETHINE HYDROCHLORIDE) [Suspect]
     Dosage: IV
     Route: 042
     Dates: start: 19810101

REACTIONS (3)
  - CARDIAC FAILURE CHRONIC [None]
  - DYSPNOEA [None]
  - EJECTION FRACTION DECREASED [None]
